FAERS Safety Report 7932725-5 (Version None)
Quarter: 2011Q4

REPORT INFORMATION
  Report Type: 
  Country: None (occurrence: None)
  Receive Date: 20111122
  Receipt Date: 20111114
  Transmission Date: 20120403
  Serious: Yes (Other)
  Sender: FDA-Public Use
  Company Number: US-PERRIGO-11US009108

PATIENT
  Sex: Female
  Weight: 81.633 kg

DRUGS (10)
  1. ACETAMINOPHEN [Suspect]
     Indication: ARTHRALGIA
     Dosage: 650-1300MG, BID
     Route: 048
     Dates: start: 20071001
  2. LASIX [Concomitant]
     Indication: HYPERTENSION
     Dosage: 40 MG, QD
     Route: 065
  3. NORVASC [Concomitant]
     Indication: HYPERTENSION
     Dosage: 5 MG, QD
     Route: 065
  4. UNSPECIFIED EYE DROPS [Concomitant]
     Indication: GLAUCOMA
     Dosage: UNK, QD
     Route: 047
  5. ZOCOR [Concomitant]
     Indication: HYPERLIPIDAEMIA
     Dosage: 20 MG, QD
     Route: 065
  6. COUMADIN [Concomitant]
     Indication: ANTICOAGULANT THERAPY
     Dosage: 3 MG, QD
     Route: 065
  7. NEXIUM [Concomitant]
     Indication: DYSPEPSIA
     Dosage: 20 MG, QD
     Route: 065
  8. SYNTHROID [Concomitant]
     Indication: HYPOTHYROIDISM
     Dosage: 50 MCG, QD
     Route: 065
  9. TOPROL-XL [Concomitant]
     Indication: HYPERTENSION
     Dosage: 100 MG, QD
     Route: 048
  10. LORAZEPAM [Concomitant]
     Indication: INSOMNIA
     Dosage: UNK, PRN
     Route: 065

REACTIONS (4)
  - NIGHTMARE [None]
  - FALL [None]
  - HALLUCINATION, VISUAL [None]
  - INCORRECT DRUG ADMINISTRATION DURATION [None]
